FAERS Safety Report 5646987-0 (Version None)
Quarter: 2008Q1

REPORT INFORMATION
  Report Type: 
  Country: None (occurrence: None)
  Receive Date: 20080303
  Receipt Date: 20080222
  Transmission Date: 20080703
  Serious: Yes (Life-Threatening, Hospitalization)
  Sender: FDA-Public Use
  Company Number: B0507539A

PATIENT
  Age: 79 Year
  Sex: Female
  Weight: 90 kg

DRUGS (1)
  1. ARIXTRA [Suspect]
     Dosage: 7.5MG PER DAY
     Route: 058
     Dates: start: 20080122

REACTIONS (4)
  - INCORRECT DOSE ADMINISTERED [None]
  - MUSCLE HAEMORRHAGE [None]
  - RECTAL HAEMORRHAGE [None]
  - SHOCK HAEMORRHAGIC [None]
